FAERS Safety Report 6587677-X (Version None)
Quarter: 2010Q1

REPORT INFORMATION
  Report Type: 
  Country: None (occurrence: None)
  Receive Date: 20100204
  Receipt Date: 20100126
  Transmission Date: 20100710
  Serious: Yes (Other)
  Sender: FDA-Public Use
  Company Number: US-GDP-10407357

PATIENT
  Age: 13 Year
  Sex: Female

DRUGS (1)
  1. DIFFERIN [Suspect]
     Dosage: TOPICAL
     Route: 061
     Dates: start: 20091201

REACTIONS (1)
  - INTRACRANIAL PRESSURE INCREASED [None]
